FAERS Safety Report 5310126-6 (Version None)
Quarter: 2007Q2

REPORT INFORMATION
  Report Type: 
  Country: None (occurrence: None)
  Receive Date: 20070427
  Receipt Date: 20070424
  Transmission Date: 20071010
  Serious: Yes (Other)
  Sender: FDA-Public Use
  Company Number: IL-BRISTOL-MYERS SQUIBB COMPANY-13758925

PATIENT
  Age: 65 Year
  Sex: Male

DRUGS (1)
  1. LYSODREN [Suspect]

REACTIONS (1)
  - NEUROLOGICAL EXAMINATION ABNORMAL [None]
